FAERS Safety Report 18217183 (Version 2)
Quarter: 2020Q4

REPORT INFORMATION
  Report Type: Spontaneous
  Country: US (occurrence: US)
  Receive Date: 20200901
  Receipt Date: 20201028
  Transmission Date: 20210113
  Serious: Yes (Other)
  Sender: FDA-Public Use
  Company Number: US-PFIZER INC-2019103753

PATIENT
  Age: 68 Year
  Sex: Male
  Weight: 91.26 kg

DRUGS (3)
  1. LYRICA [Suspect]
     Active Substance: PREGABALIN
     Indication: POST PROCEDURAL COMPLICATION
  2. LYRICA [Suspect]
     Active Substance: PREGABALIN
     Indication: PAIN
  3. LYRICA [Suspect]
     Active Substance: PREGABALIN
     Indication: SPINAL OPERATION
     Dosage: 200 MG, 2X/DAY
     Route: 048

REACTIONS (2)
  - Drug dependence [Unknown]
  - Influenza like illness [Recovered/Resolved]
